FAERS Safety Report 16866292 (Version 1)
Quarter: 2019Q3

REPORT INFORMATION
  Report Type: Spontaneous
  Country: US (occurrence: US)
  Receive Date: 20190806
  Receipt Date: 20190806
  Transmission Date: 20191007
  Serious: No
  Sender: FDA-Public Use
  Company Number: None

PATIENT
  Age: 69 Year
  Sex: Male

DRUGS (1)
  1. OMNITROPE [Suspect]
     Active Substance: SOMATROPIN
     Dates: start: 201709

REACTIONS (3)
  - Tooth abscess [None]
  - Sedation [None]
  - Therapy cessation [None]

NARRATIVE: CASE EVENT DATE: 20190806
